FAERS Safety Report 14125576 (Version 1)
Quarter: 2017Q4

REPORT INFORMATION
  Report Type: Spontaneous
  Country: US (occurrence: None)
  Receive Date: 20171025
  Receipt Date: 20171025
  Transmission Date: 20180321
  Serious: Yes (Hospitalization)
  Sender: FDA-Public Use
  Company Number: None

PATIENT
  Age: 68 Year
  Sex: Female
  Weight: 63.96 kg

DRUGS (1)
  1. XARELTO [Suspect]
     Active Substance: RIVAROXABAN
     Indication: CARDIAC DISORDER
     Dates: start: 20160830

REACTIONS (6)
  - Haemorrhagic cyst [None]
  - Pain [None]
  - Renal cyst [None]
  - Abdominal pain [None]
  - Pyrexia [None]
  - Anaemia [None]

NARRATIVE: CASE EVENT DATE: 20170808
